FAERS Safety Report 11632122 (Version 1)
Quarter: 2015Q4

REPORT INFORMATION
  Report Type: Spontaneous
  Country: US (occurrence: US)
  Receive Date: 20151015
  Receipt Date: 20151015
  Transmission Date: 20160304
  Serious: No
  Sender: FDA-Public Use
  Company Number: US-MYLANLABS-2015M1032127

PATIENT
  Age: 56 Year
  Sex: Female
  Weight: 84.35 kg

DRUGS (1)
  1. CALCITONIN SALMON. [Suspect]
     Active Substance: CALCITONIN SALMON
     Indication: LOWER LIMB FRACTURE
     Dosage: 1 DF, QD
     Route: 045
     Dates: start: 200909, end: 201507

REACTIONS (7)
  - Back pain [Recovering/Resolving]
  - Increased upper airway secretion [Recovering/Resolving]
  - Headache [Recovering/Resolving]
  - Myalgia [Recovering/Resolving]
  - Cough [Recovering/Resolving]
  - Increased viscosity of upper respiratory secretion [Recovering/Resolving]
  - Fall [Recovering/Resolving]

NARRATIVE: CASE EVENT DATE: 200909
